FAERS Safety Report 5589872-5 (Version None)
Quarter: 2008Q1

REPORT INFORMATION
  Report Type: 
  Country: None (occurrence: None)
  Receive Date: 20080114
  Receipt Date: 20080108
  Transmission Date: 20080703
  Serious: Yes (Other)
  Sender: FDA-Public Use
  Company Number: BE-WYE-G00861008

PATIENT
  Sex: Female

DRUGS (1)
  1. EFFEXOR [Suspect]
     Route: 048

REACTIONS (1)
  - HEPATITIS C [None]
